FAERS Safety Report 16497660 (Version 1)
Quarter: 2019Q2

REPORT INFORMATION
  Report Type: Spontaneous
  Country: US (occurrence: US)
  Receive Date: 20190628
  Receipt Date: 20190628
  Transmission Date: 20190711
  Serious: No
  Sender: FDA-Public Use
  Company Number: US-BAUSCH-BL-2019-018161

PATIENT
  Sex: Male

DRUGS (7)
  1. REGLAN [Concomitant]
     Active Substance: METOCLOPRAMIDE HYDROCHLORIDE
     Indication: MIGRAINE
     Route: 042
     Dates: start: 201905
  2. GENOTROPIN [Concomitant]
     Active Substance: SOMATROPIN
     Indication: GROWTH HORMONE DEFICIENCY
     Dosage: 1 MG SYRINGE, FIRST DOSE AT NIGHT AT 7 PM
     Route: 065
     Dates: start: 20190524, end: 20190525
  3. FLOVENT [Concomitant]
     Active Substance: FLUTICASONE PROPIONATE
     Indication: ASTHMA
     Dosage: 55 UNITS UNKNOWN, FOR BETWEEN AGES 2 AND 7
  4. FLOVENT [Concomitant]
     Active Substance: FLUTICASONE PROPIONATE
     Dosage: 110 UNITS UNKNOWN- 2 PUFFS MORNING AND NIGHT
  5. ZYRTEC [Concomitant]
     Active Substance: CETIRIZINE HYDROCHLORIDE
     Indication: SEASONAL ALLERGY
     Dosage: IN MARCH, APRIL, AND MAY; STARTED IT 2 OR 3 YEARS AGO
     Route: 048
  6. ATIVAN [Suspect]
     Active Substance: LORAZEPAM
     Indication: PRODUCT USED FOR UNKNOWN INDICATION
     Route: 065
     Dates: start: 201905
  7. TORADOL [Concomitant]
     Active Substance: KETOROLAC TROMETHAMINE
     Indication: MIGRAINE
     Dosage: 3 OR 4 DOSES AND AT LEAST 6 TO 7 DOSES OF TORADOL
     Route: 042
     Dates: start: 201905

REACTIONS (1)
  - Ill-defined disorder [Unknown]

NARRATIVE: CASE EVENT DATE: 201905
